FAERS Safety Report 20612700 (Version 2)
Quarter: 2022Q1

REPORT INFORMATION
  Report Type: Report from Study
  Country: CN (occurrence: None)
  Receive Date: 20220318
  Receipt Date: 20220325
  Transmission Date: 20220423
  Serious: Yes (Hospitalization)
  Sender: FDA-Public Use
  Company Number: 2022A116236

PATIENT
  Age: 73 Year
  Sex: Male
  Weight: 63 kg

DRUGS (5)
  1. OSIMERTINIB [Suspect]
     Active Substance: OSIMERTINIB
     Indication: Lung neoplasm malignant
     Route: 048
     Dates: start: 20220130, end: 20220221
  2. OSIMERTINIB [Suspect]
     Active Substance: OSIMERTINIB
     Indication: Lung neoplasm malignant
     Route: 048
     Dates: start: 20220222, end: 20220307
  3. SAVOLITINIB [Suspect]
     Active Substance: SAVOLITINIB
     Indication: Lung neoplasm malignant
     Route: 048
     Dates: start: 20220130, end: 20220221
  4. SAVOLITINIB [Suspect]
     Active Substance: SAVOLITINIB
     Indication: Lung neoplasm malignant
     Route: 048
     Dates: start: 20220223, end: 20220307
  5. AMLODIPINE BESILATE EG [Concomitant]
     Dates: start: 20220112

REACTIONS (1)
  - Drug-induced liver injury [Recovering/Resolving]

NARRATIVE: CASE EVENT DATE: 20220307
